FAERS Safety Report 19909357 (Version 4)
Quarter: 2022Q1

REPORT INFORMATION
  Report Type: Spontaneous
  Country: IN (occurrence: IN)
  Receive Date: 20211001
  Receipt Date: 20220201
  Transmission Date: 20220423
  Serious: Yes (Other)
  Sender: FDA-Public Use
  Company Number: IN-PFIZER INC-2019439799

PATIENT
  Age: 61 Year
  Sex: Male

DRUGS (12)
  1. SUTENT [Suspect]
     Active Substance: SUNITINIB MALATE
     Indication: Metastatic renal cell carcinoma
     Dosage: 37.5 MG, CYCLIC (ONCE DAILY, 2 WEEKS ON 1 WEEK OFF)
     Route: 048
     Dates: start: 20180331
  2. SUTENT [Suspect]
     Active Substance: SUNITINIB MALATE
     Dosage: 1 DF, CYCLIC (25MG AND 37.5MG ALTERNATE DAY, 2 WEEKS ON 1 WEEK OFF)
     Dates: start: 2019, end: 2019
  3. SUTENT [Suspect]
     Active Substance: SUNITINIB MALATE
     Dosage: 37.5 MG, 1X/DAY
     Route: 048
     Dates: start: 20191005
  4. SUTENT [Suspect]
     Active Substance: SUNITINIB MALATE
     Dosage: 1 DF, CYCLIC (25MG ALTERNATE IN 37.5MG (D2), 37.5MG (D3) FOR 2 WEEKS ON 1 WEEK OFF)
     Dates: start: 20191224
  5. SUTENT [Suspect]
     Active Substance: SUNITINIB MALATE
     Dosage: 1 DF, CYCLIC (25MG (D1), 37.5MG (D2), 37.5MG (D3), 2 WEEKS ON 1 WEEK OFF)
     Dates: start: 20200120
  6. SUTENT [Suspect]
     Active Substance: SUNITINIB MALATE
     Dosage: 37.5 MG, ALTERNATE DAY (ONCE A DAY FOR 2 WEEKS F/B 1 WEEK OFF)
     Route: 048
     Dates: end: 20210716
  7. SUTENT [Suspect]
     Active Substance: SUNITINIB MALATE
     Dosage: 25 MG, ALTERNATE DAY (ONCE A DAY FOR 2 WEEKS F/B 1 WEEK OFF)
     Route: 048
     Dates: end: 20210716
  8. CILACAR T [Concomitant]
     Dosage: 10/40 BD
  9. MOXOVAS [Concomitant]
     Dosage: 0.2MG HS
  10. TORSEMIDE [Concomitant]
     Active Substance: TORSEMIDE
     Dosage: 10 MG, 2X/DAY (8 AM AND 3 PM )
  11. CILNIDIPINE [Concomitant]
     Active Substance: CILNIDIPINE
     Dosage: 10 MG, 1X/DAY
  12. THYROXINE [Concomitant]
     Active Substance: LEVOTHYROXINE
     Dosage: 12.5 MG, 1X/DAY

REACTIONS (5)
  - Cataract [Unknown]
  - Blood calcium decreased [Unknown]
  - Pain [Unknown]
  - Blood pressure increased [Unknown]
  - Off label use [Unknown]

NARRATIVE: CASE EVENT DATE: 20191224
